FAERS Safety Report 24665621 (Version 1)
Quarter: 2024Q4

REPORT INFORMATION
  Report Type: Report from Study
  Country: DE (occurrence: DE)
  Receive Date: 20241126
  Receipt Date: 20241126
  Transmission Date: 20250114
  Serious: Yes (Other)
  Sender: AMNEAL
  Company Number: DE-AMNEAL PHARMACEUTICALS-2024-AMRX-04321

PATIENT

DRUGS (16)
  1. ONGENTYS [Suspect]
     Active Substance: OPICAPONE
     Indication: Product used for unknown indication
     Dosage: UNK
     Route: 048
  2. CARBIDOPA\LEVODOPA [Suspect]
     Active Substance: CARBIDOPA\LEVODOPA
     Indication: Parkinson^s disease
     Dosage: MD: 2.0 ML; CRD: 3.8 ML/H; CRN: 3.7 ML/H; ED: 1.7 ML (DAY) ED: 1.5 ML (NIGHT)
  3. CARBIDOPA\LEVODOPA [Suspect]
     Active Substance: CARBIDOPA\LEVODOPA
     Dosage: MD: 5.0 ML; CRD: 3.8 ML/H; CRN: 3.8 ML/H; ED: 1.5 ML; UNKNOWN
     Dates: start: 20201015
  4. MOVICOL [Concomitant]
     Active Substance: POLYETHYLENE GLYCOL 3350\POTASSIUM CHLORIDE\SODIUM BICARBONATE\SODIUM CHLORIDE
     Indication: Product used for unknown indication
     Dosage: 06 DOSAGE FORM
     Route: 065
  5. VALSARTAN [Concomitant]
     Active Substance: VALSARTAN
     Indication: Product used for unknown indication
     Dosage: 160 MILLIGRAM, 2X/DAY
     Route: 065
  6. POLYETHYLENE GLYCOLS [Concomitant]
     Active Substance: POLYETHYLENE GLYCOLS
     Indication: Product used for unknown indication
     Dosage: ONCE, DAILY
     Route: 065
  7. HYDROMORPHONE [Concomitant]
     Active Substance: HYDROMORPHONE
     Indication: Product used for unknown indication
     Dosage: 08 MILLIGRAM, BID
     Route: 065
  8. RIVASTIGMINE TARTRATE [Concomitant]
     Active Substance: RIVASTIGMINE TARTRATE
     Indication: Product used for unknown indication
     Dosage: 1.5 MILLIGRAM, BID
     Route: 065
  9. XADAGO [Concomitant]
     Active Substance: SAFINAMIDE MESYLATE
     Indication: Product used for unknown indication
     Dosage: 100 MILLIGRAM, QD
     Route: 065
  10. AMLODIPINE [Concomitant]
     Active Substance: AMLODIPINE BESYLATE
     Indication: Product used for unknown indication
     Dosage: 05 MILLIGRAM, QD
     Route: 065
  11. MIRABEGRON [Concomitant]
     Active Substance: MIRABEGRON
  12. DULCOLAX (BISACODYL) [Concomitant]
     Active Substance: BISACODYL
     Indication: Product used for unknown indication
     Dosage: SUPPOSITORY, EVERY 3 WEEKS
     Route: 065
  13. PANTOPRAZOLE SODIUM [Concomitant]
     Active Substance: PANTOPRAZOLE SODIUM
     Indication: Product used for unknown indication
     Dosage: 40 MILLIGRAM, DAILY
     Route: 065
  14. CLONAZEPAM [Concomitant]
     Active Substance: CLONAZEPAM
     Indication: Product used for unknown indication
     Dosage: UNK
     Route: 065
  15. FUSICUTAN PLUS BETAMETHASON [Concomitant]
     Indication: Product used for unknown indication
     Dosage: UNK
     Route: 065
  16. RIVOTRIL [Concomitant]
     Active Substance: CLONAZEPAM
     Indication: Product used for unknown indication

REACTIONS (33)
  - Upper gastrointestinal haemorrhage [Unknown]
  - Chronic kidney disease [Unknown]
  - Faecaloma [Unknown]
  - Cervical vertebral fracture [Unknown]
  - Malignant melanoma [Unknown]
  - Basal cell carcinoma [Unknown]
  - Hallucination [Unknown]
  - Obstructive sleep apnoea syndrome [Unknown]
  - Scoliosis [Unknown]
  - Parkinsonism [Unknown]
  - Parkinsonian gait [Unknown]
  - Dysarthria [Unknown]
  - Diarrhoea [Unknown]
  - Hyperlipidaemia [Unknown]
  - Fall [Unknown]
  - Drug intolerance [Unknown]
  - Gastrointestinal ulcer [Unknown]
  - Stoma site hypergranulation [Unknown]
  - Stoma site erythema [Unknown]
  - Cognitive disorder [Unknown]
  - Mobility decreased [Unknown]
  - Urinary incontinence [Unknown]
  - Rotator cuff syndrome [Unknown]
  - Stoma site discharge [Unknown]
  - Flatulence [Unknown]
  - Balance disorder [Unknown]
  - Headache [Unknown]
  - Confusional state [Unknown]
  - Restlessness [Unknown]
  - Dysphagia [Unknown]
  - Sensitivity to weather change [Unknown]
  - Hypertension [Unknown]
  - Constipation [Unknown]

NARRATIVE: CASE EVENT DATE: 20201101
